FAERS Safety Report 12798822 (Version 4)
Quarter: 2016Q4

REPORT INFORMATION
  Report Type: Report from Study
  Country: US (occurrence: US)
  Receive Date: 20160930
  Receipt Date: 20161111
  Transmission Date: 20170207
  Serious: Yes (Other)
  Sender: FDA-Public Use
  Company Number: US-BIOGEN-2016BI00297686

PATIENT
  Age: 47 Year
  Sex: Female

DRUGS (15)
  1. ESTRADIOL. [Concomitant]
     Active Substance: ESTRADIOL
     Indication: PRODUCT USED FOR UNKNOWN INDICATION
     Route: 065
  2. CHOLESTYRAMINE. [Concomitant]
     Active Substance: CHOLESTYRAMINE
     Indication: PRODUCT USED FOR UNKNOWN INDICATION
     Route: 065
     Dates: start: 20160804
  3. AVONEX [Suspect]
     Active Substance: INTERFERON BETA-1A
     Route: 042
     Dates: start: 20160917
  4. HYDROCODONE-ACETAMINOPHEN [Concomitant]
     Active Substance: ACETAMINOPHEN\HYDROCODONE
     Indication: PAIN
     Dosage: 10-325 MG?1-2 TAB EVERY 4 HOURS PRN
     Route: 048
     Dates: start: 20090622
  5. HYDROMORPHONE HCL [Concomitant]
     Active Substance: HYDROMORPHONE HYDROCHLORIDE
     Indication: PAIN
     Dosage: 1 TO 2 TABS EVERY 4 TO 6 HOURS PRN
     Route: 048
  6. AVONEX [Suspect]
     Active Substance: INTERFERON BETA-1A
     Route: 065
     Dates: end: 20160320
  7. CALTRATE [Concomitant]
     Active Substance: CALCIUM CARBONATE
     Indication: PRODUCT USED FOR UNKNOWN INDICATION
     Dosage: 600-400 MG
     Route: 048
     Dates: start: 20110531
  8. IBUPROFEN. [Concomitant]
     Active Substance: IBUPROFEN
     Indication: PRODUCT USED FOR UNKNOWN INDICATION
     Dosage: Q4-6 HR PRN
     Route: 048
     Dates: start: 20110613
  9. COLACE [Concomitant]
     Active Substance: DOCUSATE SODIUM
     Indication: CONSTIPATION
     Route: 048
     Dates: start: 20110613
  10. AUBAGIO [Concomitant]
     Active Substance: TERIFLUNOMIDE
     Indication: DIARRHOEA
  11. CABERGOLINE. [Concomitant]
     Active Substance: CABERGOLINE
     Indication: PRODUCT USED FOR UNKNOWN INDICATION
     Route: 048
     Dates: start: 20090120
  12. EPIPEN [Concomitant]
     Active Substance: EPINEPHRINE
     Indication: PRODUCT USED FOR UNKNOWN INDICATION
     Dosage: 0.3 MG/0.3 ML
     Route: 030
     Dates: start: 20110513
  13. AVONEX [Suspect]
     Active Substance: INTERFERON BETA-1A
     Indication: RELAPSING-REMITTING MULTIPLE SCLEROSIS
     Route: 065
     Dates: start: 200705
  14. AVONEX [Suspect]
     Active Substance: INTERFERON BETA-1A
     Route: 030
     Dates: start: 20090610
  15. AUBAGIO [Concomitant]
     Active Substance: TERIFLUNOMIDE
     Indication: WEIGHT DECREASED
     Route: 065
     Dates: start: 20160416, end: 20160714

REACTIONS (10)
  - Pollakiuria [Unknown]
  - Post procedural haemorrhage [Recovered/Resolved]
  - Cystitis [Unknown]
  - Urinary retention postoperative [Unknown]
  - Hot flush [Unknown]
  - Ligament rupture [Unknown]
  - Laparotomy [Unknown]
  - Micturition urgency [Unknown]
  - Endometrial hyperplasia [Recovered/Resolved]
  - Night sweats [Unknown]

NARRATIVE: CASE EVENT DATE: 20110613
